FAERS Safety Report 25295596 (Version 1)
Quarter: 2025Q2

REPORT INFORMATION
  Report Type: Spontaneous
  Country: US (occurrence: US)
  Receive Date: 20250511
  Receipt Date: 20250511
  Transmission Date: 20250717
  Serious: No
  Sender: SANOFI AVENTIS
  Company Number: US-SA-2025SA130346

PATIENT
  Sex: Female

DRUGS (7)
  1. DUPIXENT [Suspect]
     Active Substance: DUPILUMAB
     Indication: Asthma
     Dosage: 200 MG, QOW
     Route: 058
  2. SULFACETAMIDE [Concomitant]
     Active Substance: SULFACETAMIDE
     Dosage: QOW
  3. DICLOFENAC SODIUM [Concomitant]
     Active Substance: DICLOFENAC SODIUM
  4. FLUCONAZOLE [Concomitant]
     Active Substance: FLUCONAZOLE
  5. PRAVASTATIN [Concomitant]
     Active Substance: PRAVASTATIN
  6. TOPIRAMATE [Concomitant]
     Active Substance: TOPIRAMATE
  7. TRELEGY ELLIPTA [Concomitant]
     Active Substance: FLUTICASONE FUROATE\UMECLIDINIUM BROMIDE\VILANTEROL TRIFENATATE

REACTIONS (8)
  - Urine abnormality [Not Recovered/Not Resolved]
  - Urine odour abnormal [Not Recovered/Not Resolved]
  - Micturition urgency [Not Recovered/Not Resolved]
  - Hordeolum [Not Recovered/Not Resolved]
  - Visual impairment [Not Recovered/Not Resolved]
  - Ophthalmic migraine [Not Recovered/Not Resolved]
  - Sacral pain [Not Recovered/Not Resolved]
  - Dry eye [Not Recovered/Not Resolved]
